FAERS Safety Report 15745957 (Version 1)
Quarter: 2018Q4

REPORT INFORMATION
  Report Type: Spontaneous
  Country: US (occurrence: US)
  Receive Date: 20181220
  Receipt Date: 20181220
  Transmission Date: 20190205
  Serious: No
  Sender: FDA-Public Use
  Company Number: US-INCYTE CORPORATION-2018IN012744

PATIENT

DRUGS (1)
  1. JAKAFI [Suspect]
     Active Substance: RUXOLITINIB
     Indication: MYELOFIBROSIS
     Dosage: 10 MG, EVERY OTHER DAY EXCEPT TUESDAY AND SUNDAY; 15 MG, ON TUESDAYS AND FRIDAYS ONLY
     Route: 048
     Dates: start: 20181021

REACTIONS (2)
  - Inappropriate schedule of product administration [Unknown]
  - Herpes zoster [Not Recovered/Not Resolved]
